FAERS Safety Report 6416048-1 (Version None)
Quarter: 2009Q4

REPORT INFORMATION
  Report Type: 
  Country: None (occurrence: None)
  Receive Date: 20091023
  Receipt Date: 20091006
  Transmission Date: 20100525
  Serious: Yes (Hospitalization, Other)
  Sender: FDA-Public Use
  Company Number: JPI-P-008828

PATIENT
  Age: 45 Year
  Sex: Female
  Weight: 116.1208 kg

DRUGS (22)
  1. XYREM [Suspect]
     Indication: CATAPLEXY
     Dosage: 4.5 GM (2.25 GM, 2 IN 1 D), ORAL : 9 GM (4.5 GM, 2 IN 1 D), ORAL
     Route: 048
     Dates: start: 20070101, end: 20070101
  2. XYREM [Suspect]
     Indication: CATAPLEXY
     Dosage: 4.5 GM (2.25 GM, 2 IN 1 D), ORAL : 9 GM (4.5 GM, 2 IN 1 D), ORAL
     Route: 048
     Dates: start: 20070101
  3. XYREM [Suspect]
     Indication: CATAPLEXY
     Dosage: 4.5 GM (2.25 GM, 2 IN 1 D), ORAL : 9 GM (4.5 GM, 2 IN 1 D), ORAL
     Route: 048
     Dates: start: 20070426
  4. ALPRAZOLAM [Concomitant]
  5. FLUOXETINE HCL [Concomitant]
  6. VENLAFAXINE [Concomitant]
  7. LANSOPRAZOLE [Concomitant]
  8. MODAFINIL [Concomitant]
  9. METHYLPHENIDATE HCL [Concomitant]
  10. MONTELUKAST [Concomitant]
  11. SIMVASTATIN [Concomitant]
  12. TOLTERODINE TARTRATE [Concomitant]
  13. ALBUTEROL [Concomitant]
  14. BUDESONIDE AND FORMOTEROL [Concomitant]
  15. SUMATRIPTAN [Concomitant]
  16. TOPIRAMATE [Concomitant]
  17. HYDROCHLOROTHIAZIDE [Concomitant]
  18. LISINOPRIL [Concomitant]
  19. LORATADINE [Concomitant]
  20. MULTI-VITAMIN [Concomitant]
  21. ACETAMINOPHEN, ASPIRIN AND CAFFEINE [Concomitant]
  22. IBUPROFEN [Concomitant]

REACTIONS (8)
  - CHOLELITHIASIS [None]
  - CONSTIPATION [None]
  - FEELING DRUNK [None]
  - HYPERTENSION [None]
  - MIDDLE INSOMNIA [None]
  - SOMNAMBULISM [None]
  - SUDDEN ONSET OF SLEEP [None]
  - WEIGHT DECREASED [None]
